FAERS Safety Report 4427960-7 (Version None)
Quarter: 2004Q3

REPORT INFORMATION
  Report Type: 
  Country: None (occurrence: None)
  Receive Date: 20040813
  Receipt Date: 20031210
  Transmission Date: 20050211
  Serious: Yes (Death)
  Sender: FDA-Public Use
  Company Number: 01-05-0029

PATIENT
  Age: 18 Year
  Sex: Male
  Weight: 31.7518 kg

DRUGS (9)
  1. THALOMID [Suspect]
     Indication: ANAPLASTIC ASTROCYTOMA
     Dosage: 850 MG, DAILY, ORAL
     Route: 048
     Dates: start: 20010128, end: 20010427
  2. TEMOZOLAMIDE [Concomitant]
  3. DEXAMETHASONE [Concomitant]
  4. OMEPRAZOLE [Concomitant]
  5. SERTRALINE HYDROCHLORIDE [Concomitant]
  6. COLACE (DOCUSATE SODIUM) [Concomitant]
  7. FLUCONAZOLE [Concomitant]
  8. ZOFRAN [Concomitant]
  9. HERBAL PREPARATION (HERBAL PREPARATION) [Concomitant]

REACTIONS (5)
  - ACTIVITIES OF DAILY LIVING IMPAIRED [None]
  - ACUTE LYMPHOCYTIC LEUKAEMIA [None]
  - ASTHENIA [None]
  - DEEP VEIN THROMBOSIS [None]
  - THROMBOCYTOPENIA [None]
